FAERS Safety Report 25718074 (Version 1)
Quarter: 2025Q3

REPORT INFORMATION
  Report Type: Spontaneous
  Country: US (occurrence: US)
  Receive Date: 20250823
  Receipt Date: 20250823
  Transmission Date: 20251020
  Serious: No
  Sender: ABBVIE
  Company Number: US-ABBVIE-6421154

PATIENT
  Age: 75 Year
  Sex: Female
  Weight: 54 kg

DRUGS (3)
  1. KETOROLAC [Suspect]
     Active Substance: KETOROLAC TROMETHAMINE
     Indication: Pain
     Route: 047
     Dates: start: 20250813, end: 20250817
  2. RALOXIFENE [Concomitant]
     Active Substance: RALOXIFENE
     Indication: Bone density abnormal
  3. PREDNISONE [Concomitant]
     Active Substance: PREDNISONE
     Indication: Product used for unknown indication

REACTIONS (2)
  - Eye pain [Not Recovered/Not Resolved]
  - Eye irritation [Not Recovered/Not Resolved]

NARRATIVE: CASE EVENT DATE: 20250801
